FAERS Safety Report 7093694-6 (Version None)
Quarter: 2010Q4

REPORT INFORMATION
  Report Type: 
  Country: None (occurrence: None)
  Receive Date: 20101102
  Receipt Date: 20101025
  Transmission Date: 20110411
  Serious: Yes (Hospitalization, Other)
  Sender: FDA-Public Use
  Company Number: 2008-187930-NL

PATIENT
  Sex: Female
  Weight: 70.3 kg

DRUGS (4)
  1. NUVARING [Suspect]
     Dates: start: 20060701, end: 20061201
  2. AVELOX [Concomitant]
  3. PREDNISOLONE [Concomitant]
  4. BIAXIN [Concomitant]

REACTIONS (19)
  - AMNESIA [None]
  - CHRONIC SINUSITIS [None]
  - CONVULSION [None]
  - DEEP VEIN THROMBOSIS [None]
  - ENCEPHALOMALACIA [None]
  - EXCORIATION [None]
  - FACIAL BONES FRACTURE [None]
  - FALL [None]
  - HAEMORRHAGIC CEREBRAL INFARCTION [None]
  - JUGULAR VEIN THROMBOSIS [None]
  - LIP INJURY [None]
  - MIGRAINE [None]
  - MYOFASCIAL PAIN SYNDROME [None]
  - NASAL OEDEMA [None]
  - STATUS EPILEPTICUS [None]
  - SYNCOPE [None]
  - SYNOVITIS [None]
  - TRANSVERSE SINUS THROMBOSIS [None]
  - VISUAL ACUITY REDUCED [None]
